FAERS Safety Report 24528629 (Version 1)
Quarter: 2024Q4

REPORT INFORMATION
  Report Type: Spontaneous
  Country: US (occurrence: None)
  Receive Date: 20241019
  Receipt Date: 20241019
  Transmission Date: 20250115
  Serious: No
  Sender: Public
  Company Number: None

PATIENT
  Age: 42 Year
  Sex: Male

DRUGS (1)
  1. TALTZ [Suspect]
     Active Substance: IXEKIZUMAB
     Indication: Ankylosing spondylitis
     Dates: start: 20241016

REACTIONS (3)
  - Injection site inflammation [None]
  - Injection site pain [None]
  - Urticaria [None]

NARRATIVE: CASE EVENT DATE: 20241016
